FAERS Safety Report 9470465 (Version 2)
Quarter: 2014Q1

REPORT INFORMATION
  Report Type: Report from Study
  Country: US (occurrence: US)
  Receive Date: 20130822
  Receipt Date: 20140110
  Transmission Date: 20141002
  Serious: Yes (Other)
  Sender: FDA-Public Use
  Company Number: US-SANOFI-AVENTIS-2013SA083179

PATIENT
  Age: 54 Year
  Sex: Male

DRUGS (18)
  1. OXALIPLATIN [Suspect]
     Indication: METASTASES TO LIVER
     Dosage: ON DAY 1; 1,2 CYCLES; INFUSION
     Route: 013
  2. OXALIPLATIN [Suspect]
     Indication: METASTASES TO LIVER
     Dosage: ON DAY 1; INFUSION
     Route: 013
  3. OXALIPLATIN [Suspect]
     Indication: METASTASES TO LIVER
     Dosage: ON DAY 1; 4TH CYCLE; INFUSION
     Route: 013
  4. OXALIPLATIN [Suspect]
     Indication: METASTASES TO LIVER
     Dosage: ON DAY 1; INFUSION
     Route: 013
  5. FLUOROURACIL [Concomitant]
     Indication: METASTASES TO LIVER
     Dosage: ON DAY 1
  6. BEVACIZUMAB [Concomitant]
     Indication: METASTASES TO LIVER
     Dosage: ON DAY 2
  7. BEVACIZUMAB [Concomitant]
     Indication: METASTASES TO LIVER
     Dosage: ON DAY 2
  8. BEVACIZUMAB [Concomitant]
     Indication: METASTASES TO LIVER
     Dosage: ON DAY 2
  9. BEVACIZUMAB [Concomitant]
     Indication: METASTASES TO LIVER
     Dosage: ON DAY 2
  10. BEVACIZUMAB [Concomitant]
     Indication: METASTASES TO LIVER
     Dosage: ON DAY 2
  11. DEXAMETHASONE [Concomitant]
  12. FAMOTIDINE [Concomitant]
  13. FERROUS SULFATE [Concomitant]
  14. ACETAMINOPHEN [Concomitant]
  15. LEVOTHYROXINE [Concomitant]
  16. MULTIVITAMINS [Concomitant]
  17. NICOTINE [Concomitant]
     Route: 062
  18. OLANZAPINE [Concomitant]

REACTIONS (4)
  - Hyperbilirubinaemia [Recovered/Resolved]
  - Aspartate aminotransferase increased [Recovered/Resolved]
  - Abdominal pain [Recovered/Resolved]
  - Alanine aminotransferase increased [Recovered/Resolved]
